FAERS Safety Report 6827153-X (Version None)
Quarter: 2010Q3

REPORT INFORMATION
  Report Type: 
  Country: None (occurrence: None)
  Receive Date: 20100709
  Receipt Date: 20100628
  Transmission Date: 20110219
  Serious: Yes (Hospitalization)
  Sender: FDA-Public Use
  Company Number: TR-ELI_LILLY_AND_COMPANY-TR201007000256

PATIENT

DRUGS (3)
  1. HUMULIN N [Suspect]
     Indication: GESTATIONAL DIABETES
     Dosage: 6 U, EACH MORNING
     Route: 064
     Dates: start: 20100401, end: 20100501
  2. HUMULIN N [Suspect]
     Dosage: 2 U, EACH EVENING
     Route: 064
     Dates: start: 20100401, end: 20100501
  3. HUMULIN R [Suspect]
     Indication: GESTATIONAL DIABETES
     Dosage: 4 U, 3/D
     Route: 064
     Dates: start: 20100401, end: 20100510

REACTIONS (2)
  - DRUG EXPOSURE DURING PREGNANCY [None]
  - LUNG DISORDER [None]
